FAERS Safety Report 21548743 (Version 1)
Quarter: 2022Q4

REPORT INFORMATION
  Report Type: Spontaneous
  Country: US (occurrence: US)
  Receive Date: 20221103
  Receipt Date: 20221103
  Transmission Date: 20230113
  Serious: No
  Sender: FDA-Public Use
  Company Number: US-009507513-2210USA003651

PATIENT
  Sex: Female

DRUGS (3)
  1. TRUSOPT [Suspect]
     Active Substance: DORZOLAMIDE HYDROCHLORIDE
     Indication: Glaucoma
     Dosage: 1 DROP, 3 TIMES DAILY
     Dates: start: 2006
  2. TRUSOPT [Suspect]
     Active Substance: DORZOLAMIDE HYDROCHLORIDE
     Dosage: 1 DROP, 2 TIMES DAILY
  3. TRUSOPT [Suspect]
     Active Substance: DORZOLAMIDE HYDROCHLORIDE
     Dosage: 3 DROPS, 2 TIMES DAILY

REACTIONS (6)
  - Eye swelling [Unknown]
  - Intraocular pressure test abnormal [Unknown]
  - Visual impairment [Unknown]
  - Vision blurred [Unknown]
  - Product use issue [Unknown]
  - Product prescribing issue [Unknown]
